FAERS Safety Report 6078432-8 (Version None)
Quarter: 2009Q1

REPORT INFORMATION
  Report Type: 
  Country: None (occurrence: None)
  Receive Date: 20090212
  Receipt Date: 20090202
  Transmission Date: 20090719
  Serious: Yes (Death)
  Sender: FDA-Public Use
  Company Number: TRP_05978_2008

PATIENT
  Sex: Male
  Weight: 90.7194 kg

DRUGS (10)
  1. INFERGEN [Suspect]
     Indication: HEPATITIS C
     Dosage: 15 UG QD SUBCUTANEOUS
     Route: 058
     Dates: start: 20081112
  2. RIBAVIRIN [Suspect]
     Indication: HEPATITIS C
     Dosage: 1000 MG, 400 MG IN THE MORNING AND 600 MG IN THE EVENING, ORAL
     Route: 048
     Dates: start: 20081112
  3. METFORMIN [Concomitant]
  4. ISOSORBIDE [Concomitant]
  5. ENALAPRIL [Concomitant]
  6. METOPROLOL [Concomitant]
  7. SIMVASTATIN [Concomitant]
  8. FELODIPINE [Concomitant]
  9. NEXIUM [Concomitant]
  10. NOVOLIN /00030501/ [Concomitant]

REACTIONS (7)
  - DECREASED APPETITE [None]
  - DISCOMFORT [None]
  - FATIGUE [None]
  - INSOMNIA [None]
  - MYOCARDIAL INFARCTION [None]
  - PAIN [None]
  - VISUAL IMPAIRMENT [None]
